FAERS Safety Report 18960554 (Version 1)
Quarter: 2021Q1

REPORT INFORMATION
  Report Type: Spontaneous
  Country: US (occurrence: US)
  Receive Date: 20210302
  Receipt Date: 20210302
  Transmission Date: 20210420
  Serious: No
  Sender: FDA-Public Use
  Company Number: US-009507513-2102USA007953

PATIENT
  Sex: Male

DRUGS (1)
  1. ZOLINZA [Suspect]
     Active Substance: VORINOSTAT
     Indication: SENSITISATION
     Dosage: IN 2 WEEK INTERVALS FOR A TOTAL OF 6 WEEKS

REACTIONS (1)
  - Product use in unapproved indication [Unknown]
